FAERS Safety Report 9821049 (Version 3)
Quarter: 2014Q1

REPORT INFORMATION
  Report Type: Report from Study
  Country: US (occurrence: US)
  Receive Date: 20140116
  Receipt Date: 20140206
  Transmission Date: 20141002
  Serious: Yes (Hospitalization)
  Sender: FDA-Public Use
  Company Number: US-EXELIXIS-XL18414003898

PATIENT
  Age: 73 Year
  Sex: Male

DRUGS (6)
  1. XL184 [Suspect]
     Indication: PROSTATE CANCER
     Dosage: 60 MG, QD
     Route: 048
     Dates: start: 20130619
  2. XL184 [Suspect]
     Dosage: 20 MG, QD
     Route: 048
     Dates: end: 20131203
  3. XL184 [Suspect]
     Indication: PROSTATE CANCER
     Dosage: 5 MG, BID
     Route: 048
     Dates: start: 20130619, end: 20131204
  4. XTANDI [Concomitant]
  5. HYDROCHLOROTHIAZIDE [Concomitant]
  6. LISINOPRIL [Concomitant]

REACTIONS (2)
  - Atrioventricular block complete [Recovered/Resolved with Sequelae]
  - Dyspnoea [Recovered/Resolved]
